FAERS Safety Report 19376342 (Version 1)
Quarter: 2021Q2

REPORT INFORMATION
  Report Type: Spontaneous
  Country: JP (occurrence: JP)
  Receive Date: 20210604
  Receipt Date: 20210604
  Transmission Date: 20210717
  Serious: Yes (Other)
  Sender: FDA-Public Use
  Company Number: JP-MEDEXUS PHARMA, INC.-2021MED00129

PATIENT
  Age: 62 Year
  Sex: Male

DRUGS (2)
  1. METHOTREXATE. [Suspect]
     Active Substance: METHOTREXATE
     Indication: OCULAR LYMPHOMA
     Dosage: 400 MCG/0.1 ML, 1X/WEEK
     Route: 031
  2. METHOTREXATE. [Suspect]
     Active Substance: METHOTREXATE
     Dosage: 400 MCG/0.1 ML, 1X/MONTH
     Route: 031

REACTIONS (1)
  - Retinal toxicity [Unknown]
